FAERS Safety Report 4458832-X (Version None)
Quarter: 2004Q3

REPORT INFORMATION
  Report Type: 
  Country: None (occurrence: None)
  Receive Date: 20040922
  Receipt Date: 20040922
  Transmission Date: 20050211
  Serious: Yes (Death)
  Sender: FDA-Public Use
  Company Number: None

PATIENT
  Age: 58 Year
  Sex: Female

DRUGS (3)
  1. NAVELBINE [Suspect]
     Dosage: 50 MG
     Dates: start: 20040421
  2. VINORELBINE TARTRATE [Suspect]
     Dosage: 50 MG
     Dates: start: 20040427
  3. TAXOTERE [Concomitant]

REACTIONS (7)
  - BONE MARROW DEPRESSION [None]
  - BREAST CANCER METASTATIC [None]
  - GASTROINTESTINAL MUCOSITIS [None]
  - HEPATIC FAILURE [None]
  - NEUTROPENIA [None]
  - SEPSIS [None]
  - STOMATITIS [None]
